FAERS Safety Report 7053962-0 (Version None)
Quarter: 2010Q4

REPORT INFORMATION
  Report Type: 
  Country: None (occurrence: None)
  Receive Date: 20101020
  Receipt Date: 20101015
  Transmission Date: 20110411
  Serious: Yes (Life-Threatening)
  Sender: FDA-Public Use
  Company Number: JP-BAYER-201014541BYL

PATIENT
  Age: 64 Year
  Sex: Male
  Weight: 62 kg

DRUGS (2)
  1. NEXAVAR [Suspect]
     Indication: RENAL CELL CARCINOMA
     Dosage: TOTAL DAILY DOSE: 800 MG  UNIT DOSE: 200 MG
     Route: 048
     Dates: start: 20100713, end: 20100824
  2. TS-1 [Concomitant]
     Indication: RENAL CELL CARCINOMA
     Route: 048
     Dates: start: 20100713, end: 20100810

REACTIONS (1)
  - HEPATIC FUNCTION ABNORMAL [None]
